FAERS Safety Report 5517169-8 (Version None)
Quarter: 2007Q4

REPORT INFORMATION
  Report Type: 
  Country: None (occurrence: None)
  Receive Date: 20071114
  Receipt Date: 20071108
  Transmission Date: 20080405
  Serious: Yes (Other)
  Sender: FDA-Public Use
  Company Number: US-AVENTIS-200719663GDDC

PATIENT
  Age: 54 Year
  Sex: Male
  Weight: 111.8 kg

DRUGS (8)
  1. LANTUS [Suspect]
     Route: 058
     Dates: start: 20020819
  2. INSULIN LISPRO [Suspect]
     Dates: start: 20020819
  3. ACETYLSALICYLIC ACID SRT [Concomitant]
     Route: 048
  4. EZETIMIBE [Concomitant]
     Route: 048
     Dates: start: 20051001
  5. SIMVASTATIN [Concomitant]
     Route: 048
     Dates: start: 20051001
  6. FEXOFENADINE HYDROCHLORIDE [Concomitant]
     Route: 048
     Dates: start: 20020701
  7. OMEPRAZOLE [Concomitant]
     Route: 048
     Dates: start: 20021207
  8. RAMIPRIL [Concomitant]
     Route: 048
     Dates: start: 20020701

REACTIONS (2)
  - HYPOGLYCAEMIC UNCONSCIOUSNESS [None]
  - WRONG DRUG ADMINISTERED [None]
